FAERS Safety Report 9493895 (Version 1)
Quarter: 2013Q3

REPORT INFORMATION
  Report Type: Report from Study
  Country: US (occurrence: US)
  Receive Date: 20130903
  Receipt Date: 20130903
  Transmission Date: 20140515
  Serious: Yes (Hospitalization, Other)
  Sender: FDA-Public Use
  Company Number: US-ASTRAZENECA-2013SE63004

PATIENT
  Age: 64 Year
  Sex: Female
  Weight: 73.5 kg

DRUGS (13)
  1. CRESTOR [Suspect]
     Indication: MYOCARDIAL INFARCTION
     Route: 048
  2. CRESTOR [Suspect]
     Indication: BLOOD CHOLESTEROL INCREASED
     Route: 048
  3. CRESTOR [Suspect]
     Indication: MYOCARDIAL INFARCTION
     Route: 048
  4. CRESTOR [Suspect]
     Indication: BLOOD CHOLESTEROL INCREASED
     Route: 048
  5. FOLIC ACID [Concomitant]
     Dates: start: 2010
  6. BENADRYL OVER THE COUNTER [Concomitant]
     Indication: RHINORRHOEA
  7. BENADRYL OVER THE COUNTER [Concomitant]
     Indication: SNEEZING
  8. PROTONIX [Concomitant]
     Indication: GASTROOESOPHAGEAL REFLUX DISEASE
  9. ASPIRIN [Concomitant]
     Indication: CEREBROVASCULAR ACCIDENT
     Dates: start: 2010
  10. VITAMIN D3 [Concomitant]
     Indication: VITAMIN SUPPLEMENTATION
  11. ANTIOXIDANT FORMULA [Concomitant]
     Indication: ANTIOXIDANT THERAPY
  12. XANAX [Concomitant]
     Indication: ANXIETY
  13. GENERIC LASIX [Concomitant]
     Indication: SWELLING

REACTIONS (10)
  - Hemiparesis [Not Recovered/Not Resolved]
  - Cerebrovascular accident [Unknown]
  - Diplopia [Not Recovered/Not Resolved]
  - Blood pressure systolic increased [Unknown]
  - Wrist fracture [Unknown]
  - Depression [Not Recovered/Not Resolved]
  - Fall [Unknown]
  - Osteoporosis [Not Recovered/Not Resolved]
  - Arthralgia [Unknown]
  - Drug dose omission [Not Recovered/Not Resolved]
